FAERS Safety Report 7939090-8 (Version None)
Quarter: 2011Q4

REPORT INFORMATION
  Report Type: 
  Country: None (occurrence: None)
  Receive Date: 20111124
  Receipt Date: 20111111
  Transmission Date: 20120403
  Serious: Yes (Hospitalization, Other)
  Sender: FDA-Public Use
  Company Number: FI-AMGEN-FINSP2011052885

PATIENT
  Age: 18 Year
  Sex: Female
  Weight: 53 kg

DRUGS (19)
  1. ARANESP [Suspect]
     Dosage: 80 MUG, QWK
     Route: 042
     Dates: start: 20110811, end: 20110930
  2. ARANESP [Suspect]
     Dosage: 80 MUG, QWK
     Route: 042
     Dates: start: 20111010
  3. ETALPHA [Concomitant]
     Dosage: 0.5 MUG, 3 TIMES/WK
     Route: 048
     Dates: start: 20100604
  4. ARANESP [Suspect]
     Indication: HAEMODIALYSIS
     Dosage: 40 MUG, Q4WK
     Route: 058
     Dates: start: 20100604, end: 20100608
  5. INDOMETHACIN [Suspect]
     Indication: PROTEINURIA
     Dosage: 25 MG, BID
     Route: 048
     Dates: start: 20110930, end: 20111010
  6. KALCIPOS-D [Concomitant]
     Indication: VITAMIN B1 DEFICIENCY
  7. LOSATRIX [Concomitant]
     Dosage: 12.5 MG, QD
     Route: 048
     Dates: start: 20111003
  8. PANTOPRAZOLE [Concomitant]
     Indication: PROPHYLAXIS
     Dosage: 40 MG, QD
     Route: 048
     Dates: start: 20110930, end: 20111028
  9. ARANESP [Suspect]
     Dosage: 60 MUG, Q2WK
     Route: 058
     Dates: start: 20110726, end: 20110801
  10. ENALAPRIL MALEATE [Concomitant]
     Indication: BLOOD PRESSURE
     Dosage: 2.5 MG, QD
     Route: 048
     Dates: start: 20100604
  11. RENVELA [Concomitant]
     Indication: PHOSPHORUS METABOLISM DISORDER
     Dosage: 1600 MG, BID
     Route: 048
     Dates: start: 20110520
  12. KALCIPOS-D [Concomitant]
     Indication: PHOSPHORUS METABOLISM DISORDER
     Dosage: UNK
     Route: 048
     Dates: start: 20100604
  13. FRAGMIN [Concomitant]
     Dosage: 2500 IU, 3 TIMES/WK
     Route: 042
     Dates: start: 20110804
  14. FERINJECT [Concomitant]
  15. ARANESP [Suspect]
     Dosage: 60 MUG, QMO
     Route: 058
     Dates: start: 20110608, end: 20110726
  16. ARANESP [Suspect]
     Dosage: 60 MUG, QWK
     Route: 058
     Dates: start: 20110801, end: 20110811
  17. RENAVIT [Concomitant]
     Indication: HYPOVITAMINOSIS
     Dosage: UNK UNK, 3 TIMES/WK
     Route: 048
     Dates: start: 20110808
  18. GENTAMICIN [Concomitant]
     Dosage: UNK
     Dates: start: 20110914, end: 20111026
  19. HEPAFLEX [Concomitant]

REACTIONS (11)
  - ACIDOSIS [None]
  - FOLATE DEFICIENCY [None]
  - HYPERKALAEMIA [None]
  - NEUTROPENIA [None]
  - IRON DEFICIENCY [None]
  - BLOOD CREATININE INCREASED [None]
  - PROTEINURIA [None]
  - RETICULOCYTOPENIA [None]
  - HYPERPHOSPHATAEMIA [None]
  - FULL BLOOD COUNT DECREASED [None]
  - ANAEMIA [None]
